FAERS Safety Report 9181414 (Version 2)
Quarter: 2013Q1

REPORT INFORMATION
  Report Type: Spontaneous
  Country: AT (occurrence: AT)
  Receive Date: 20130322
  Receipt Date: 20130329
  Transmission Date: 20140127
  Serious: Yes (Life-Threatening, Hospitalization)
  Sender: FDA-Public Use
  Company Number: AT-JNJFOC-20130307654

PATIENT
  Age: 79 Year
  Sex: Male

DRUGS (8)
  1. ZYTIGA [Suspect]
     Indication: PROSTATE CANCER
     Route: 048
     Dates: start: 201208
  2. THYREX [Concomitant]
     Dosage: 1-0-0
     Route: 065
  3. FIRMAGON [Concomitant]
     Route: 065
  4. XGEVA [Concomitant]
     Route: 058
  5. MAXI-CALC D3 [Concomitant]
     Route: 065
  6. NEUROBION FORTE [Concomitant]
     Route: 065
  7. GABAPENTIN [Concomitant]
     Route: 065
  8. PREDNISOLON [Concomitant]
     Dosage: 1-0-1
     Route: 065

REACTIONS (2)
  - Thalamus haemorrhage [Recovering/Resolving]
  - Blood pressure increased [Recovered/Resolved]
